FAERS Safety Report 15335282 (Version 1)
Quarter: 2018Q3

REPORT INFORMATION
  Report Type: Spontaneous
  Country: DE (occurrence: DE)
  Receive Date: 20180830
  Receipt Date: 20180830
  Transmission Date: 20181010
  Serious: Yes (Congenital Anomaly, Other)
  Sender: FDA-Public Use
  Company Number: PHHY2018DE081354

PATIENT
  Sex: Female

DRUGS (7)
  1. PREDNISOLON [Concomitant]
     Active Substance: PREDNISOLONE
     Indication: PROPHYLAXIS OF ABORTION
     Dosage: 15 MG, QD
     Route: 064
  2. FOLSAEURE [Concomitant]
     Active Substance: FOLIC ACID
     Indication: PROPHYLAXIS OF NEURAL TUBE DEFECT
     Dosage: 5 [MG/D ]
     Route: 064
     Dates: start: 20170320, end: 20171211
  3. SERTRALINE [Suspect]
     Active Substance: SERTRALINE HYDROCHLORIDE
     Dosage: 200 MG, QD
     Route: 064
  4. L?THYROXINE [Concomitant]
     Active Substance: LEVOTHYROXINE
     Indication: AUTOIMMUNE THYROIDITIS
     Dosage: 200 [?G/D ]/ VARYING DOSAGES BETWEEN 150 AND 200?G/D
     Route: 064
  5. METOPROLOL. [Suspect]
     Active Substance: METOPROLOL
     Indication: GESTATIONAL HYPERTENSION
     Dosage: 125 [MG/D ]
     Route: 064
  6. LANTUS [Concomitant]
     Active Substance: INSULIN GLARGINE
     Indication: GESTATIONAL DIABETES
     Dosage: 12 OT, [IE/D ]
     Route: 064
  7. ACTRAPID [Concomitant]
     Active Substance: INSULIN HUMAN
     Indication: GESTATIONAL DIABETES
     Dosage: 28 I.E, QD
     Route: 064

REACTIONS (3)
  - Renal dysplasia [Unknown]
  - Agitation neonatal [Recovered/Resolved]
  - Congenital hydronephrosis [Recovering/Resolving]
